FAERS Safety Report 4286907-7 (Version None)
Quarter: 2004Q1

REPORT INFORMATION
  Report Type: 
  Country: None (occurrence: None)
  Receive Date: 20040204
  Receipt Date: 20040122
  Transmission Date: 20041129
  Serious: Yes (Other)
  Sender: FDA-Public Use
  Company Number: 2004005108

PATIENT
  Age: 61 Year
  Sex: Male

DRUGS (1)
  1. CYCLOKAPRON (TRANEXAMIC ACID) [Suspect]
     Indication: RECTAL HAEMORRHAGE
     Dosage: 1G DAILY, ORAL
     Route: 048

REACTIONS (2)
  - ACUTE MYOCARDIAL INFARCTION [None]
  - THROMBOSIS [None]
